FAERS Safety Report 13354994 (Version 10)
Quarter: 2019Q3

REPORT INFORMATION
  Report Type: Report from Study
  Country: US (occurrence: US)
  Receive Date: 20170321
  Receipt Date: 20190716
  Transmission Date: 20191004
  Serious: Yes (Hospitalization)
  Sender: FDA-Public Use
  Company Number: US-ACTELION-A-NJ2017-151309

PATIENT
  Age: 37 Year
  Sex: Female
  Weight: 114.29 kg

DRUGS (4)
  1. OPSUMIT [Suspect]
     Active Substance: MACITENTAN
     Indication: PULMONARY HYPERTENSION
     Dosage: 10 MG, QD
     Route: 048
  2. XARELTO [Concomitant]
     Active Substance: RIVAROXABAN
  3. TYVASO [Suspect]
     Active Substance: TREPROSTINIL
     Indication: PRODUCT USED FOR UNKNOWN INDICATION
     Dosage: 3 BREATHS
     Route: 065
     Dates: start: 20180724
  4. ADCIRCA [Concomitant]
     Active Substance: TADALAFIL

REACTIONS (17)
  - Uterine infection [Unknown]
  - Oedema [Unknown]
  - Feeling abnormal [Unknown]
  - Dyspnoea at rest [Unknown]
  - Dyspnoea exertional [Unknown]
  - Cough [Unknown]
  - Flushing [Unknown]
  - Oedema peripheral [Unknown]
  - Dizziness [Recovered/Resolved]
  - Dyspnoea [Recovering/Resolving]
  - Treatment noncompliance [Unknown]
  - Road traffic accident [Unknown]
  - Rash pruritic [Unknown]
  - Product dose omission [Unknown]
  - Diarrhoea [Unknown]
  - Feeling hot [Unknown]
  - Dyspepsia [Unknown]

NARRATIVE: CASE EVENT DATE: 20180724
